FAERS Safety Report 8169824-1 (Version None)
Quarter: 2012Q1

REPORT INFORMATION
  Report Type: 
  Country: None (occurrence: None)
  Receive Date: 20120228
  Receipt Date: 20120216
  Transmission Date: 20120608
  Serious: No
  Sender: FDA-Public Use
  Company Number: US-JNJFOC-20120210822

PATIENT
  Age: 41 Year
  Sex: Male

DRUGS (3)
  1. INVEGA SUSTENNA [Suspect]
     Indication: SCHIZOPHRENIA
     Route: 030
     Dates: start: 20120201
  2. SEROQUEL [Concomitant]
     Indication: SCHIZOPHRENIA
     Route: 065
     Dates: start: 20120201
  3. FANAPT [Concomitant]
     Indication: SCHIZOPHRENIA
     Route: 065
     Dates: start: 20120201, end: 20120201

REACTIONS (1)
  - RETROGRADE EJACULATION [None]
